FAERS Safety Report 9772934 (Version 1)
Quarter: 2013Q4

REPORT INFORMATION
  Report Type: Spontaneous
  Country: GB (occurrence: GB)
  Receive Date: 20131219
  Receipt Date: 20131219
  Transmission Date: 20140711
  Serious: Yes (Death)
  Sender: FDA-Public Use
  Company Number: GB-TEVA-450078ISR

PATIENT
  Age: 22 Year
  Sex: Male
  Weight: 47 kg

DRUGS (6)
  1. AZATHIOPRINE [Suspect]
     Indication: COLITIS ULCERATIVE
     Route: 048
     Dates: start: 20130701, end: 20130721
  2. PENTASA [Concomitant]
     Indication: COLITIS ULCERATIVE
     Dosage: 4 GRAM DAILY;
     Route: 048
  3. PENTASA [Concomitant]
     Indication: COLITIS ULCERATIVE
     Dosage: 1 GRAM DAILY; 1 GR AT NIGHT
     Route: 054
     Dates: start: 20130701
  4. PREDNISOLONE [Concomitant]
     Indication: COLITIS ULCERATIVE
     Route: 048
     Dates: start: 20130702
  5. OMEPRAZOLE [Concomitant]
     Route: 048
     Dates: start: 20130702
  6. ADCAL-D3 [Concomitant]
     Dosage: 2 DOSAGE FORMS DAILY;
     Route: 048
     Dates: start: 20130702

REACTIONS (4)
  - Multi-organ failure [Fatal]
  - Cerebral haemorrhage [Fatal]
  - Bone marrow failure [Fatal]
  - Sepsis [Fatal]
